FAERS Safety Report 6523942-X (Version None)
Quarter: 2009Q4

REPORT INFORMATION
  Report Type: 
  Country: None (occurrence: None)
  Receive Date: 20091231
  Receipt Date: 20091223
  Transmission Date: 20100525
  Serious: Yes (Death, Life-Threatening, Hospitalization, Other)
  Sender: FDA-Public Use
  Company Number: GB-BRISTOL-MYERS SQUIBB COMPANY-14008205

PATIENT
  Age: 25 Year
  Sex: Male

DRUGS (14)
  1. CIPROFLOXACIN [Suspect]
     Indication: CHEST DISCOMFORT
     Route: 065
  2. CIPROFLOXACIN [Suspect]
     Indication: COUGH
     Route: 065
  3. EFAVIRENZ [Suspect]
     Indication: HIV INFECTION
     Route: 065
  4. IBUPROFEN [Suspect]
     Indication: PAIN IN EXTREMITY
     Route: 065
  5. COMBIVIR [Suspect]
     Indication: HIV INFECTION
     Route: 065
  6. LAMIVUDINE [Suspect]
     Indication: HIV INFECTION
     Route: 048
     Dates: start: 20030408, end: 20030417
  7. NEVIRAPINE [Suspect]
     Indication: HIV INFECTION
  8. TENOFOVIR DISOPROXIL FUMARATE [Suspect]
     Indication: HIV INFECTION
     Route: 065
  9. CLARITHROMYCIN [Suspect]
     Indication: CHEST DISCOMFORT
     Route: 065
  10. CLARITHROMYCIN [Suspect]
     Indication: COUGH
     Route: 065
  11. CO-TRIMOXAZOLE [Suspect]
     Indication: PNEUMOCYSTIS JIROVECI PNEUMONIA
  12. CO-TRIMOXAZOLE [Suspect]
     Indication: PROPHYLAXIS
  13. LOPERAMIDE HCL [Suspect]
     Indication: DIARRHOEA
     Route: 065
  14. BACTRIM [Concomitant]
     Indication: PROPHYLAXIS

REACTIONS (14)
  - AGITATION [None]
  - ALANINE AMINOTRANSFERASE INCREASED [None]
  - BIOPSY LIVER ABNORMAL [None]
  - BLOOD ALKALINE PHOSPHATASE INCREASED [None]
  - BLOOD BILIRUBIN INCREASED [None]
  - CONFUSIONAL STATE [None]
  - COUGH [None]
  - HAEMOGLOBIN DECREASED [None]
  - PAIN IN EXTREMITY [None]
  - PYREXIA [None]
  - SCLERAL DISCOLOURATION [None]
  - SEPSIS [None]
  - VANISHING BILE DUCT SYNDROME [None]
  - VOMITING [None]
